FAERS Safety Report 17568078 (Version 4)
Quarter: 2020Q2

REPORT INFORMATION
  Report Type: Spontaneous
  Country: US (occurrence: US)
  Receive Date: 20200320
  Receipt Date: 20200414
  Transmission Date: 20200713
  Serious: Yes (Other)
  Sender: FDA-Public Use
  Company Number: US-009507513-2003USA004859

PATIENT
  Sex: Female

DRUGS (1)
  1. ZOCOR [Suspect]
     Active Substance: SIMVASTATIN
     Indication: BLOOD CHOLESTEROL INCREASED
     Dosage: UNK
     Route: 048

REACTIONS (10)
  - Pain in extremity [Unknown]
  - Non-small cell lung cancer stage IV [Unknown]
  - Asthma exercise induced [Unknown]
  - Colitis microscopic [Unknown]
  - Intestinal metastasis [Unknown]
  - Depression [Unknown]
  - Intestinal obstruction [Unknown]
  - K-ras gene mutation [Unknown]
  - Anxiety [Unknown]
  - Adverse event [Unknown]

NARRATIVE: CASE EVENT DATE: 2014
